FAERS Safety Report 24697107 (Version 2)
Quarter: 2025Q2

REPORT INFORMATION
  Report Type: Spontaneous
  Country: US (occurrence: US)
  Receive Date: 20241204
  Receipt Date: 20250501
  Transmission Date: 20250716
  Serious: No
  Sender: PFIZER
  Company Number: US-PFIZER INC-PV202400154796

PATIENT
  Age: 61 Year
  Sex: Female

DRUGS (1)
  1. XELJANZ [Suspect]
     Active Substance: TOFACITINIB CITRATE
     Dates: start: 2021, end: 2023

REACTIONS (4)
  - Immune system disorder [Unknown]
  - COVID-19 [Unknown]
  - Illness [Unknown]
  - Intentional product misuse [Unknown]
